FAERS Safety Report 8513500-X (Version None)
Quarter: 2012Q3

REPORT INFORMATION
  Report Type: 
  Country: None (occurrence: None)
  Receive Date: 20120717
  Receipt Date: 20120710
  Transmission Date: 20120928
  Serious: No
  Sender: FDA-Public Use
  Company Number: US-BIOGENIDEC-2012BI024657

PATIENT
  Age: 42 Year
  Sex: Male

DRUGS (2)
  1. TYSABRI [Suspect]
     Indication: MULTIPLE SCLEROSIS
     Route: 042
     Dates: start: 20110720
  2. OXYCODONE HCL [Concomitant]
     Indication: PAIN

REACTIONS (6)
  - COGNITIVE DISORDER [None]
  - MYALGIA [None]
  - MUSCULAR WEAKNESS [None]
  - HYPERAESTHESIA [None]
  - GAIT DISTURBANCE [None]
  - ASTHENIA [None]
